FAERS Safety Report 12972967 (Version 3)
Quarter: 2017Q1

REPORT INFORMATION
  Report Type: Spontaneous
  Country: US (occurrence: US)
  Receive Date: 20161124
  Receipt Date: 20170104
  Transmission Date: 20170428
  Serious: No
  Sender: FDA-Public Use
  Company Number: US-PFIZER INC-2014357118

PATIENT
  Age: 67 Year
  Sex: Female
  Weight: 58.96 kg

DRUGS (1)
  1. ATORVASTATIN CALCIUM. [Suspect]
     Active Substance: ATORVASTATIN CALCIUM
     Indication: BLOOD CHOLESTEROL ABNORMAL
     Dosage: 20 MG, 1X/DAY (40MG 1/2 TABLET EVERY EVENING)

REACTIONS (3)
  - Drug dose omission [Unknown]
  - Gastric disorder [Unknown]
  - Gastrointestinal disorder [Unknown]
